FAERS Safety Report 18063914 (Version 1)
Quarter: 2020Q3

REPORT INFORMATION
  Report Type: Other
  Country: JP (occurrence: JP)
  Receive Date: 20200724
  Receipt Date: 20200724
  Transmission Date: 20201103
  Serious: Yes (Hospitalization, Other)
  Sender: FDA-Public Use
  Company Number: JP-CHANGZHOU PHARMACEUTICAL FACTORY-2087678

PATIENT
  Age: 59 Year
  Sex: Female

DRUGS (1)
  1. ROSUVASTATIN CALCIUM. [Suspect]
     Active Substance: ROSUVASTATIN CALCIUM
     Indication: HYPERLIPIDAEMIA
     Route: 065

REACTIONS (4)
  - Acute respiratory failure [Recovered/Resolved]
  - Myopathy [Recovered/Resolved]
  - Hypoxia [Recovered/Resolved]
  - Hypercapnia [Recovered/Resolved]
